FAERS Safety Report 23942550 (Version 1)
Quarter: 2024Q2

REPORT INFORMATION
  Report Type: Spontaneous
  Country: US (occurrence: None)
  Receive Date: 20240604
  Receipt Date: 20240604
  Transmission Date: 20240716
  Serious: No
  Sender: FDA-Public Use
  Company Number: None

PATIENT
  Age: 27 Year
  Sex: Male

DRUGS (2)
  1. TRIAMCINOLONE [Suspect]
     Active Substance: TRIAMCINOLONE
     Indication: Dermatitis atopic
     Dosage: FREQUENCY : DAILY;?
     Route: 061
     Dates: start: 20240315, end: 20240513
  2. PIMECROLIMUS [Suspect]
     Active Substance: PIMECROLIMUS
     Indication: Dermatitis atopic
     Dosage: FREQUENCY : TWICE A DAY;?
     Route: 061
     Dates: start: 20240315, end: 20240513

REACTIONS (1)
  - Rash [None]
